FAERS Safety Report 23872881 (Version 1)
Quarter: 2024Q2

REPORT INFORMATION
  Report Type: Spontaneous
  Country: NO (occurrence: NO)
  Receive Date: 20240520
  Receipt Date: 20240520
  Transmission Date: 20240716
  Serious: Yes (Hospitalization)
  Sender: FDA-Public Use
  Company Number: NO-STERISCIENCE B.V.-2024-ST-000652

PATIENT

DRUGS (9)
  1. MIDAZOLAM [Suspect]
     Active Substance: MIDAZOLAM
     Indication: Anxiety
     Dosage: 68 MILLIGRAM, QD (AT DAY 1)
     Route: 051
  2. DEXMEDETOMIDINE [Concomitant]
     Active Substance: DEXMEDETOMIDINE
     Indication: Anxiety
     Dosage: 1056 MICROGRAM, QD (AT DAY 1)
     Route: 065
  3. DEXMEDETOMIDINE [Concomitant]
     Active Substance: DEXMEDETOMIDINE
     Indication: Palliative care
     Dosage: 1082 MICROGRAM, QD (AT DAY 2)
     Route: 065
  4. DEXMEDETOMIDINE [Concomitant]
     Active Substance: DEXMEDETOMIDINE
     Dosage: 1104 MICROGRAM, QD (AT DAY 3)
     Route: 065
  5. DEXMEDETOMIDINE [Concomitant]
     Active Substance: DEXMEDETOMIDINE
     Dosage: 1892 MICROGRAM, QD (AT DAY 4)
     Route: 065
  6. DEXMEDETOMIDINE [Concomitant]
     Active Substance: DEXMEDETOMIDINE
     Dosage: 2440 MICROGRAM, QD (AT DAY 5)
     Route: 065
  7. DEXMEDETOMIDINE [Concomitant]
     Active Substance: DEXMEDETOMIDINE
     Dosage: 1920 MICROGRAM, QD (AT DAY 6)
     Route: 065
  8. DEXMEDETOMIDINE [Concomitant]
     Active Substance: DEXMEDETOMIDINE
     Dosage: 2040 MICROGRAM, QD (AT DAY 7)
     Route: 065
  9. HYDROMORPHONE [Concomitant]
     Active Substance: HYDROMORPHONE
     Indication: Cancer pain
     Dosage: 260 MILLIGRAM, QD (AT DAY 1)
     Route: 065

REACTIONS (1)
  - Drug ineffective [Unknown]
